FAERS Safety Report 11404390 (Version 3)
Quarter: 2015Q4

REPORT INFORMATION
  Report Type: Report from Study
  Country: CO (occurrence: CO)
  Receive Date: 20150821
  Receipt Date: 20151013
  Transmission Date: 20160304
  Serious: Yes (Hospitalization)
  Sender: FDA-Public Use
  Company Number: PHHY2015CO085589

PATIENT
  Age: 38 Year
  Sex: Female
  Weight: 90 kg

DRUGS (4)
  1. HYDROCHLOROTHIAZIDE. [Concomitant]
     Active Substance: HYDROCHLOROTHIAZIDE
     Indication: DIURETIC THERAPY
     Dosage: 25 MG, QD
     Route: 065
     Dates: start: 20150707
  2. CARVEDILOL. [Concomitant]
     Active Substance: CARVEDILOL
     Indication: PRODUCT USED FOR UNKNOWN INDICATION
     Dosage: 6.25 MG, Q12H
     Route: 065
     Dates: start: 20150707
  3. SIGNIFOR [Suspect]
     Active Substance: PASIREOTIDE
     Indication: PITUITARY-DEPENDENT CUSHING^S SYNDROME
     Dosage: 0.9 OT, BID
     Route: 058
     Dates: start: 201412, end: 201502
  4. LOSARTAN. [Concomitant]
     Active Substance: LOSARTAN
     Indication: HYPERTENSION
     Dosage: 50 MG, Q12H
     Route: 065
     Dates: start: 20150707

REACTIONS (11)
  - Chest pain [Unknown]
  - Angina pectoris [Recovered/Resolved]
  - Asthenia [Unknown]
  - Thrombosis [Recovered/Resolved]
  - Cough [Unknown]
  - Headache [Unknown]
  - Hypertensive emergency [Recovered/Resolved]
  - Paraesthesia [Unknown]
  - Dyspnoea [Unknown]
  - Cerebral ischaemia [Recovered/Resolved]
  - Cardiac failure [Recovered/Resolved]

NARRATIVE: CASE EVENT DATE: 201506
